FAERS Safety Report 8408124-9 (Version None)
Quarter: 2012Q2

REPORT INFORMATION
  Report Type: 
  Country: None (occurrence: None)
  Receive Date: 20120529
  Receipt Date: 20060201
  Transmission Date: 20120825
  Serious: Yes (Hospitalization)
  Sender: FDA-Public Use
  Company Number: 02100-JPN-06-0002

PATIENT
  Age: 74 Year
  Sex: Male

DRUGS (11)
  1. PROSTAL L (CHLORMADINONE ACETATE) SLOW RELEASE TABLET [Concomitant]
  2. ENALAPRIL MALEATE [Concomitant]
  3. ALINAMIN-F (FURSULTIAMINE) TABLET [Concomitant]
  4. BASEN (VOGLIBOSE) TABLET [Concomitant]
  5. TETUCUR S (FERROUS SULFATE) TABLET [Concomitant]
  6. SYMMETREL [Concomitant]
  7. VASOMET (TERAZOSIN HYDROCHLORIDE) TABLET [Concomitant]
  8. PLETAL [Suspect]
     Dosage: 100 MG, BID, ORAL
     Route: 048
     Dates: start: 20041221, end: 20051114
  9. LANSOPRAZOLE [Suspect]
     Indication: GASTROOESOPHAGEAL REFLUX DISEASE
     Dosage: 30 MG, QD, ORAL
     Route: 048
     Dates: start: 20051030, end: 20051114
  10. RESLIN (TRAZODONE HYDROCHLORIDE) TABLET [Concomitant]
  11. HARNAL (TAMSULOSIN HYDROCHLORIDE) TABLET [Concomitant]

REACTIONS (9)
  - DEPRESSED LEVEL OF CONSCIOUSNESS [None]
  - GASTROINTESTINAL HAEMORRHAGE [None]
  - EROSIVE OESOPHAGITIS [None]
  - BLOOD UREA INCREASED [None]
  - HAEMOGLOBIN DECREASED [None]
  - MELAENA [None]
  - SHOCK HAEMORRHAGIC [None]
  - DRUG LEVEL INCREASED [None]
  - HAEMATEMESIS [None]
